FAERS Safety Report 8230209-0 (Version None)
Quarter: 2012Q1

REPORT INFORMATION
  Report Type: 
  Country: None (occurrence: None)
  Receive Date: 20120323
  Receipt Date: 20120308
  Transmission Date: 20120608
  Serious: Yes (Hospitalization)
  Sender: FDA-Public Use
  Company Number: BE-CELGENEUS-013-C5013-10062655

PATIENT
  Sex: Male
  Weight: 78.8 kg

DRUGS (75)
  1. MOVIPREP [Concomitant]
     Dosage: 2 DOSAGE FORMS
     Route: 048
     Dates: start: 20100528, end: 20100531
  2. CACIT VITAMIN D3 [Concomitant]
     Indication: VITAMIN SUPPLEMENTATION
     Dosage: 1 DOSAGE FORMS
     Route: 048
     Dates: start: 20100503
  3. AMITRIPTYLINE HCL [Concomitant]
     Indication: DEPRESSION
     Dosage: 25 MILLIGRAM
     Route: 048
     Dates: start: 20081120, end: 20100531
  4. FENTANYL [Concomitant]
     Dosage: 25 MICROGRAM
     Route: 061
     Dates: start: 20100523, end: 20100525
  5. CETIRIZINE HYDROCHLORIDE [Concomitant]
     Indication: PROPHYLAXIS
     Dosage: 10 MILLIGRAM
     Route: 048
     Dates: start: 20100522, end: 20100531
  6. MORPHINE SULFATE [Concomitant]
     Dosage: 30 MILLIGRAM
     Route: 048
     Dates: start: 20100524, end: 20100524
  7. ACETAMINOPHEN [Concomitant]
     Dosage: 2 GRAM
     Route: 048
     Dates: start: 20100706, end: 20100706
  8. ACETAMINOPHEN [Concomitant]
     Dosage: 3 GRAM
     Route: 048
     Dates: start: 20100706, end: 20100707
  9. FERO-GRAD [Concomitant]
     Indication: IRON DEFICIENCY
     Dosage: 525 MILLIGRAM
     Route: 048
     Dates: start: 20100527, end: 20100608
  10. DINATRIUM PAMIDRONAAT [Concomitant]
     Indication: OSTEOPOROSIS PROPHYLAXIS
     Dosage: 90 MILLIGRAM
     Route: 041
     Dates: start: 20100527, end: 20100527
  11. OXYCODONE HCL [Concomitant]
     Dosage: 60 MILLIGRAM
     Route: 048
     Dates: start: 20100528, end: 20100529
  12. THALIDOMIDE [Suspect]
     Dosage: 100 MILLIGRAM
     Route: 048
     Dates: start: 20100526, end: 20100625
  13. OMEPRAZOLE [Concomitant]
     Dosage: 20 MILLIGRAM
     Route: 048
     Dates: start: 20100709
  14. FENTANYL [Concomitant]
     Dosage: 2400 MICROGRAM
     Route: 062
     Dates: start: 20100513, end: 20100524
  15. FENTANYL [Concomitant]
     Dosage: 480 MICROGRAM
     Route: 062
     Dates: start: 20100528
  16. NATRIUM PICOSULFAAT [Concomitant]
     Dosage: 15 MILLILITER
     Route: 048
     Dates: start: 20100527, end: 20100527
  17. NATRIUM PICOSULFAAT [Concomitant]
     Dosage: 10 DROPS
     Route: 048
     Dates: start: 20100528, end: 20100530
  18. FUROSEMIDE [Concomitant]
     Dosage: 40 MILLIGRAM
     Route: 041
     Dates: start: 20100528, end: 20100530
  19. FUROSEMIDE [Concomitant]
     Indication: PROPHYLAXIS
     Dosage: 40 MILLIGRAM
     Route: 048
     Dates: start: 20100626, end: 20100626
  20. ACYCLOVIR [Concomitant]
     Indication: ANTIVIRAL PROPHYLAXIS
     Dosage: 800 MILLIGRAM
     Route: 048
     Dates: start: 20100629, end: 20100705
  21. LEKOVIT CA [Concomitant]
     Indication: PROPHYLAXIS
     Dosage: 1 POCKET
     Route: 048
     Dates: start: 20100503
  22. MOVIPREP [Concomitant]
     Route: 048
     Dates: start: 20100601
  23. OMEPRAZOLE [Concomitant]
     Indication: PROPHYLAXIS
     Dosage: 20 MILLIGRAM
     Route: 048
  24. PREGABALIN [Concomitant]
     Dosage: 150 MILLIGRAM
     Route: 048
     Dates: start: 20100603
  25. NATRIUM PICOSULFAAT [Concomitant]
     Route: 048
     Dates: start: 20100603, end: 20100624
  26. OXYCODONE HCL [Concomitant]
     Route: 048
     Dates: start: 20100603, end: 20100624
  27. ACYCLOVIR [Concomitant]
     Dosage: 500 MILLIGRAM
     Route: 041
     Dates: start: 20100707, end: 20100707
  28. ZOLPIDEM TARTRATE [Concomitant]
     Indication: INSOMNIA
     Dosage: 10 MILLIGRAM
     Route: 048
     Dates: start: 20100706, end: 20100708
  29. THALIDOMIDE [Suspect]
     Indication: MULTIPLE MYELOMA
     Dosage: 200 MILLIGRAM
     Route: 048
     Dates: start: 20100520
  30. ASPIRIN [Concomitant]
     Indication: THROMBOSIS PROPHYLAXIS
     Dosage: 80 MILLIGRAM
     Route: 048
     Dates: start: 20100512, end: 20100628
  31. ASPIRIN [Concomitant]
     Dosage: 80 MILLIGRAM
     Route: 048
     Dates: start: 20100707
  32. VERAPAMIL HYDROCHLORIDE [Concomitant]
     Indication: HYPERTENSION
     Dosage: 80 MILLIGRAM
     Route: 048
     Dates: start: 20031208
  33. AMITRIPTYLINE HCL [Concomitant]
     Dosage: 25 MILLIGRAM
     Route: 048
     Dates: start: 20100602, end: 20100610
  34. AMITRIPTYLINE HCL [Concomitant]
     Dosage: 10 MILLIGRAM
     Route: 048
     Dates: start: 20100611, end: 20100627
  35. CETIRIZINE HYDROCHLORIDE [Concomitant]
     Dosage: 10 MILLILITER
     Route: 048
     Dates: start: 20100602, end: 20100630
  36. MORPHINE SULFATE [Concomitant]
     Dosage: 30 MILLIGRAM
     Route: 048
     Dates: start: 20100522, end: 20100522
  37. MORPHINE SULFATE [Concomitant]
     Dosage: 240 MILLIGRAM
     Route: 048
     Dates: start: 20100525, end: 20100525
  38. ACETAMINOPHEN [Concomitant]
     Indication: RIB FRACTURE
     Dosage: 1 GRAM
     Route: 048
     Dates: start: 20100522, end: 20100524
  39. POTASSIUM CHLORIDE [Concomitant]
     Dosage: 1
     Route: 041
     Dates: start: 20100706, end: 20100707
  40. MORPHINE SULFATE [Concomitant]
     Indication: RIB FRACTURE
     Dosage: 240 MILLIGRAM
     Route: 048
     Dates: start: 20100525, end: 20100525
  41. MORPHINE SULFATE [Concomitant]
     Dosage: 50 MILLIGRAM
     Route: 048
     Dates: start: 20100526, end: 20100526
  42. MELPHALAN HYDROCHLORIDE [Suspect]
     Indication: MULTIPLE MYELOMA
     Dosage: 10 MILLIGRAM
     Route: 048
     Dates: start: 20100520, end: 20100625
  43. NATRIUM PICOSULFAAT [Concomitant]
     Indication: CONSTIPATION
     Dosage: 6 DROPS
     Route: 048
     Dates: start: 20100522, end: 20100527
  44. ACETAMINOPHEN [Concomitant]
     Dosage: 3 GRAM
     Route: 048
     Dates: start: 20100525, end: 20100526
  45. ACETAMINOPHEN [Concomitant]
     Dosage: 4 GRAM
     Route: 048
     Dates: start: 20100527, end: 20100622
  46. ACYCLOVIR [Concomitant]
     Dosage: 400 MILLIGRAM
     Route: 048
     Dates: start: 20100708, end: 20100708
  47. PREGABALIN [Concomitant]
     Dosage: 300 MILLIGRAM
     Route: 048
     Dates: start: 20100326, end: 20100602
  48. FENTANYL [Concomitant]
     Dosage: 2400 MICROGRAM
     Route: 062
     Dates: start: 20100516, end: 20100527
  49. MORPHINE SULFATE [Concomitant]
     Dosage: 150 MILLIGRAM
     Route: 048
     Dates: start: 20100526, end: 20100526
  50. ACETAMINOPHEN [Concomitant]
     Dosage: 1 GRAM
     Route: 048
     Dates: start: 20100708, end: 20100709
  51. ALIZAPRIDE [Concomitant]
     Dosage: 2 MILLILITER
     Route: 041
     Dates: start: 20100629, end: 20100629
  52. MOVIPREP [Concomitant]
     Indication: CONSTIPATION
     Dosage: 2 DOSAGE FORMS
     Route: 048
     Dates: end: 20100504
  53. OMEPRAZOLE [Concomitant]
     Indication: GASTROENTERITIS
     Dosage: 40 MILLIGRAM
     Route: 041
     Dates: start: 20100707, end: 20100707
  54. ASPIRIN [Concomitant]
     Dosage: 525 MILLIGRAM
     Route: 048
     Dates: start: 20100624, end: 20100628
  55. FENTANYL [Concomitant]
     Indication: RIB FRACTURE
     Dosage: 3600 MICROGRAM
     Route: 062
     Dates: start: 20100525, end: 20100525
  56. FENTANYL [Concomitant]
     Dosage: 1200 MICROGRAM
     Route: 062
     Dates: start: 20100225, end: 20100528
  57. FENTANYL [Concomitant]
     Dosage: 4800 MICROGRAM
     Route: 062
     Dates: start: 20100528
  58. NATRIUM PICOSULFAAT [Concomitant]
     Dosage: 10 DROPS
     Route: 048
     Dates: start: 20100707, end: 20100707
  59. MORPHINE SULFATE [Concomitant]
     Indication: RIB FRACTURE
     Dosage: 60 MILLIGRAM
     Route: 048
     Dates: start: 20100523, end: 20100523
  60. FUROSEMIDE [Concomitant]
     Dosage: 40 MILLIGRAM
     Route: 048
     Dates: start: 20100629, end: 20100629
  61. OXYCODONE HCL [Concomitant]
     Indication: RIB FRACTURE
     Dosage: 40 MILLIGRAM
     Route: 048
     Dates: start: 20100526, end: 20100527
  62. ACYCLOVIR [Concomitant]
     Dosage: 250 MILLIGRAM
     Route: 041
     Dates: start: 20100708, end: 20100708
  63. ACYCLOVIR [Concomitant]
     Dosage: 800 MILLIGRAM
     Route: 048
     Dates: start: 20100709
  64. ALIZAPRIDE [Concomitant]
     Dosage: 50 MILLIGRAM
     Route: 041
     Dates: start: 20100706, end: 20100706
  65. ALIZAPRIDE [Concomitant]
     Dosage: 100 MILLIGRAM
     Route: 041
     Dates: start: 20100706, end: 20100709
  66. ALIZAPRIDE [Concomitant]
     Dosage: 200 MILLIGRAM
     Route: 041
     Dates: start: 20100707, end: 20100709
  67. RANITIDINE [Concomitant]
     Indication: GASTROENTERITIS
     Dosage: 100 MILLIGRAM
     Route: 041
     Dates: start: 20100708, end: 20100708
  68. PREDNISONE TAB [Suspect]
     Indication: MULTIPLE MYELOMA
     Dosage: 155 MILLIGRAM
     Route: 048
     Dates: start: 20100520, end: 20100523
  69. PREDNISONE TAB [Suspect]
     Dosage: 155 MILLIGRAM
     Route: 048
     Dates: end: 20100625
  70. MOVIPREP [Concomitant]
     Dosage: 1 DOSAGE FORMS
     Route: 048
     Dates: start: 20100523, end: 20100527
  71. ENOXAPARIN [Concomitant]
     Indication: THROMBOSIS PROPHYLAXIS
     Dosage: 40 MILLIGRAM
     Route: 058
     Dates: start: 20100415, end: 20100627
  72. ASPIRIN [Concomitant]
     Dosage: 80 MILLIGRAM
     Route: 048
     Dates: start: 20100703, end: 20100705
  73. OXYCODONE HCL [Concomitant]
     Dosage: 60 MILLIGRAM
     Route: 048
     Dates: start: 20100603
  74. CALCIUM CARBONATE [Concomitant]
     Indication: MINERAL SUPPLEMENTATION
     Dosage: 1 POCKET
     Route: 048
     Dates: start: 20100706, end: 20100708
  75. PAMIDRONATE DISODIUM [Concomitant]
     Indication: PROPHYLAXIS
     Dosage: 90 MILLIGRAM
     Route: 041
     Dates: start: 20100527, end: 20100527

REACTIONS (3)
  - SLEEP APNOEA SYNDROME [None]
  - MALAISE [None]
  - PYREXIA [None]
